FAERS Safety Report 8690846 (Version 2)
Quarter: 2012Q4

REPORT INFORMATION
  Report Type: 
  Country: US (occurrence: US)
  Receive Date: 20120729
  Receipt Date: 20120904
  Transmission Date: 20130627
  Serious: Yes (Other)
  Sender: FDA-Public Use
  Company Number: US-009507513-1207USA009014

PATIENT

DRUGS (4)
  1. DULERA [Suspect]
     Indication: ASTHMA
     Dosage: 2 DF, bid
     Dates: start: 201112
  2. DULERA [Suspect]
     Dosage: 1 DF, qd
     Dates: end: 20120611
  3. ASTELIN [Suspect]
  4. SPIRIVA [Concomitant]
     Dosage: UNK, qd

REACTIONS (4)
  - Aphonia [Unknown]
  - Dry throat [Unknown]
  - Dysphonia [Not Recovered/Not Resolved]
  - Dysphonia [Not Recovered/Not Resolved]
